FAERS Safety Report 5450723-0 (Version None)
Quarter: 2007Q3

REPORT INFORMATION
  Report Type: 
  Country: None (occurrence: None)
  Receive Date: 20070911
  Receipt Date: 20070905
  Transmission Date: 20080115
  Serious: Yes (Other)
  Sender: FDA-Public Use
  Company Number: 011235

PATIENT
  Age: 15 Year
  Sex: Female

DRUGS (1)
  1. CLARAVIS [Suspect]
     Dosage: 40 MG, QD, ORAL
     Route: 048
     Dates: start: 20070125, end: 20070224

REACTIONS (7)
  - CONGENITAL CENTRAL NERVOUS SYSTEM ANOMALY [None]
  - DRUG EXPOSURE DURING PREGNANCY [None]
  - HEART DISEASE CONGENITAL [None]
  - NEURAL TUBE DEFECT [None]
  - TREATMENT NONCOMPLIANCE [None]
  - ULTRASOUND ANTENATAL SCREEN ABNORMAL [None]
  - UNINTENDED PREGNANCY [None]
